FAERS Safety Report 6231279-1 (Version None)
Quarter: 2009Q2

REPORT INFORMATION
  Report Type: 
  Country: None (occurrence: None)
  Receive Date: 20090616
  Receipt Date: 20090608
  Transmission Date: 20091009
  Serious: Yes (Hospitalization)
  Sender: FDA-Public Use
  Company Number: DE-AMGEN-UK340357

PATIENT
  Age: 70 Year
  Sex: Male

DRUGS (3)
  1. ARANESP [Suspect]
     Indication: DIALYSIS
     Route: 065
  2. HYDROCHLOROTHIAZIDE [Concomitant]
     Route: 065
  3. AMARYL [Concomitant]
     Route: 065

REACTIONS (7)
  - ERYTHEMA [None]
  - IMPETIGO [None]
  - PHOTOSENSITIVITY REACTION [None]
  - PRURITUS [None]
  - RASH PUSTULAR [None]
  - SKIN EXFOLIATION [None]
  - SWELLING [None]
